FAERS Safety Report 9614617 (Version 1)
Quarter: 2013Q4

REPORT INFORMATION
  Report Type: Spontaneous
  Country: US (occurrence: None)
  Receive Date: 20131009
  Receipt Date: 20131009
  Transmission Date: 20140711
  Serious: Yes (Other)
  Sender: FDA-Public Use
  Company Number: None

PATIENT
  Sex: Female
  Weight: 75.93 kg

DRUGS (1)
  1. FENTANYL [Suspect]
     Dosage: FENTANYL 75 MG  Q72H  TRANSDERMAL
     Route: 062

REACTIONS (1)
  - Inadequate analgesia [None]
